FAERS Safety Report 25249761 (Version 1)
Quarter: 2025Q2

REPORT INFORMATION
  Report Type: Spontaneous
  Country: US (occurrence: US)
  Receive Date: 20250429
  Receipt Date: 20250429
  Transmission Date: 20250717
  Serious: Yes (Other)
  Sender: BAYER HEALTHCARE LLC
  Company Number: US-BAYER-2025A056244

PATIENT
  Age: 48 Year
  Sex: Female

DRUGS (2)
  1. ASPIRIN [Suspect]
     Active Substance: ASPIRIN
     Indication: Abdominal pain
  2. MELOXICAM [Suspect]
     Active Substance: MELOXICAM

REACTIONS (2)
  - Gastritis [None]
  - Gastric ulcer [None]
